FAERS Safety Report 17747369 (Version 3)
Quarter: 2020Q3

REPORT INFORMATION
  Report Type: Spontaneous
  Country: DE (occurrence: DE)
  Receive Date: 20200505
  Receipt Date: 20200729
  Transmission Date: 20201102
  Serious: Yes (Other)
  Sender: FDA-Public Use
  Company Number: DE-ALLERGAN-2018035US

PATIENT
  Sex: Male

DRUGS (1)
  1. SILODOSIN ? BP [Suspect]
     Active Substance: SILODOSIN
     Indication: PRODUCT USED FOR UNKNOWN INDICATION
     Dosage: 4 MG, QD
     Route: 065

REACTIONS (7)
  - Constipation [Recovered/Resolved]
  - Sudden onset of sleep [Recovered/Resolved]
  - Ejaculation failure [Recovered/Resolved]
  - Insomnia [Recovered/Resolved]
  - Ejaculation disorder [Recovered/Resolved]
  - Arthralgia [Recovered/Resolved]
  - Night sweats [Recovered/Resolved]

NARRATIVE: CASE EVENT DATE: 20200415
